FAERS Safety Report 23225967 (Version 1)
Quarter: 2023Q4

REPORT INFORMATION
  Report Type: Spontaneous
  Country: CA (occurrence: CA)
  Receive Date: 20231124
  Receipt Date: 20231124
  Transmission Date: 20240109
  Serious: Yes (Life-Threatening, Hospitalization, Other)
  Sender: FDA-Public Use
  Company Number: CA-BAXTER-2023BAX036492

PATIENT
  Age: 13 Year
  Sex: Male

DRUGS (4)
  1. DOXORUBICIN [Suspect]
     Active Substance: DOXORUBICIN
     Dosage: 49 MG, 2 EVERY 1 DAYS, DOSAGE FORM: INJECTION
     Route: 042
  2. CYCLOPHOSPHAMIDE [Suspect]
     Active Substance: CYCLOPHOSPHAMIDE
     Indication: Hodgkin^s disease
     Dosage: 1176 MG, 2 EVERY 1 DAYS, DOSAGE FORM: POWDER FOR SOLUTION INTRAVENOUS
     Route: 042
  3. ADCETRIS [Suspect]
     Active Substance: BRENTUXIMAB VEDOTIN
     Dosage: 147 MG, 2 EVERY 1 DAYS, DOSAGE FORM: POWDER FOR SOLUTION INTRAVENOUS
     Route: 042
  4. ETOPOSIDE [Suspect]
     Active Substance: ETOPOSIDE
     Indication: Hodgkin^s disease
     Dosage: 246 MG, 3 EVERY 1 DAYS, DOSAGE FORM: NOT SPECIFIED
     Route: 042

REACTIONS (1)
  - Febrile neutropenia [Recovered/Resolved]
